FAERS Safety Report 16189891 (Version 3)
Quarter: 2021Q2

REPORT INFORMATION
  Report Type: Spontaneous
  Country: US (occurrence: US)
  Receive Date: 20190412
  Receipt Date: 20210625
  Transmission Date: 20210716
  Serious: Yes (Other)
  Sender: FDA-Public Use
  Company Number: US-009507513-1904USA005447

PATIENT
  Age: 91 Year
  Sex: Female

DRUGS (9)
  1. BELSOMRA [Suspect]
     Active Substance: SUVOREXANT
     Indication: SLEEP DISORDER
     Dosage: THE FIRST NIGHT: 10 MILLIGRAM
     Route: 048
     Dates: start: 201904
  2. BELSOMRA [Suspect]
     Active Substance: SUVOREXANT
     Dosage: THE THIRD NIGHT: A 10 MG DOSE AT 11:30 PM AND A SECOND 10 MG AT 2AM
     Route: 048
     Dates: start: 201904, end: 201904
  3. ACETYLSALICYLIC ACID [Concomitant]
     Active Substance: ASPIRIN
     Dosage: LOW DOSAGE
  4. DILTIAZEM. [Concomitant]
     Active Substance: DILTIAZEM
  5. BENAZEPRIL HYDROCHLORIDE. [Concomitant]
     Active Substance: BENAZEPRIL HYDROCHLORIDE
  6. BELSOMRA [Suspect]
     Active Substance: SUVOREXANT
     Dosage: THE SECOND NIGHT: 10 MILLIGRAM
     Route: 048
     Dates: start: 201904
  7. BELSOMRA [Suspect]
     Active Substance: SUVOREXANT
     Dosage: ON FRIDAY 10 MILLIGRAM
     Dates: start: 20190426
  8. BELSOMRA [Suspect]
     Active Substance: SUVOREXANT
     Dosage: 10 MILLIGRAM; 1 TABLET
     Route: 048
     Dates: start: 20210604
  9. CRESTOR [Concomitant]
     Active Substance: ROSUVASTATIN CALCIUM

REACTIONS (11)
  - Malaise [Unknown]
  - Product storage error [Unknown]
  - Inappropriate schedule of product administration [Unknown]
  - Dementia [Unknown]
  - Drug ineffective [Unknown]
  - Visual impairment [Unknown]
  - Wrong technique in product usage process [Unknown]
  - Hallucination [Unknown]
  - Poor quality product administered [Unknown]
  - Movement disorder [Not Recovered/Not Resolved]
  - Product packaging issue [Unknown]

NARRATIVE: CASE EVENT DATE: 201904
